FAERS Safety Report 17951297 (Version 1)
Quarter: 2020Q2

REPORT INFORMATION
  Report Type: Spontaneous
  Country: JP (occurrence: JP)
  Receive Date: 20200626
  Receipt Date: 20200626
  Transmission Date: 20200714
  Serious: Yes (Other)
  Sender: FDA-Public Use
  Company Number: JP-OTSUKA-2020_006112

PATIENT
  Age: 53 Year
  Sex: Male

DRUGS (10)
  1. SAMSCA [Suspect]
     Active Substance: TOLVAPTAN
     Indication: CONGENITAL CYSTIC KIDNEY DISEASE
     Dosage: 75MG/DAY, UNK
     Route: 048
     Dates: start: 20190909, end: 20191110
  2. SAMSCA [Suspect]
     Active Substance: TOLVAPTAN
     Dosage: 15MG/DAY, UNK
     Route: 048
     Dates: start: 20190420, end: 20190420
  3. SAMSCA [Suspect]
     Active Substance: TOLVAPTAN
     Dosage: 45MG/DAY, UNK
     Route: 048
     Dates: start: 20190610, end: 20190707
  4. AZILVA [Concomitant]
     Active Substance: AZILSARTAN KAMEDOXOMIL
     Indication: PRODUCT USED FOR UNKNOWN INDICATION
     Dosage: 20 MG, QD
     Route: 048
     Dates: start: 201709
  5. FEBURIC [Concomitant]
     Active Substance: FEBUXOSTAT
     Indication: PRODUCT USED FOR UNKNOWN INDICATION
     Dosage: 20 MG, QD
     Route: 048
  6. SAMSCA [Suspect]
     Active Substance: TOLVAPTAN
     Dosage: 60MG/DAY, UNK
     Route: 048
     Dates: start: 20190708, end: 20190908
  7. SAMSCA [Suspect]
     Active Substance: TOLVAPTAN
     Dosage: UNK
     Route: 065
  8. SAMSCA [Suspect]
     Active Substance: TOLVAPTAN
     Dosage: 30MG/DAY, UNK
     Route: 048
     Dates: start: 20190421, end: 20190609
  9. SAMSCA [Suspect]
     Active Substance: TOLVAPTAN
     Dosage: 45MG/DAY, UNK
     Route: 048
     Dates: start: 20191111, end: 20191208
  10. AMLODIPINE [Concomitant]
     Active Substance: AMLODIPINE BESYLATE
     Indication: PRODUCT USED FOR UNKNOWN INDICATION
     Dosage: 5 MG, QD
     Route: 048

REACTIONS (2)
  - Liver disorder [Recovered/Resolved]
  - Liver disorder [Unknown]

NARRATIVE: CASE EVENT DATE: 20191111
